FAERS Safety Report 6751529-2 (Version None)
Quarter: 2010Q2

REPORT INFORMATION
  Report Type: 
  Country: None (occurrence: None)
  Receive Date: 20100602
  Receipt Date: 20100520
  Transmission Date: 20101027
  Serious: Yes (Hospitalization)
  Sender: FDA-Public Use
  Company Number: US-ROCHE-705249

PATIENT
  Sex: Female

DRUGS (6)
  1. OSELTAMIVIR PHOSPHATE [Suspect]
     Indication: H1N1 INFLUENZA
     Route: 065
     Dates: start: 20091101, end: 20091101
  2. HUMIRA [Suspect]
     Route: 065
     Dates: start: 20090101
  3. EZETIMIBE/SIMVASTATIN [Concomitant]
  4. ASPIRIN [Concomitant]
     Indication: UNEVALUABLE EVENT
  5. LEVOTHYROXINE SODIUM [Concomitant]
     Indication: HYPOTHYROIDISM
  6. TOPIRAMATE [Concomitant]

REACTIONS (5)
  - DRUG HYPERSENSITIVITY [None]
  - PNEUMONIA [None]
  - UNRESPONSIVE TO STIMULI [None]
  - VOMITING [None]
  - WHEEZING [None]
